FAERS Safety Report 6298171-8 (Version None)
Quarter: 2009Q3

REPORT INFORMATION
  Report Type: 
  Country: None (occurrence: None)
  Receive Date: 20090805
  Receipt Date: 20090727
  Transmission Date: 20100115
  Serious: Yes (Hospitalization)
  Sender: FDA-Public Use
  Company Number: FR-AVENTIS-200912790FR

PATIENT
  Age: 28 Year
  Sex: Male

DRUGS (1)
  1. RIFINAH [Suspect]
     Indication: PULMONARY TUBERCULOSIS
     Route: 048
     Dates: start: 20090209, end: 20090507

REACTIONS (2)
  - HENOCH-SCHONLEIN PURPURA [None]
  - VASCULAR PURPURA [None]
